FAERS Safety Report 23806052 (Version 3)
Quarter: 2024Q2

REPORT INFORMATION
  Report Type: Report from Study
  Country: US (occurrence: US)
  Receive Date: 20240502
  Receipt Date: 20240510
  Transmission Date: 20240716
  Serious: No
  Sender: FDA-Public Use
  Company Number: US-BIOVITRUM-2024-US-005480

PATIENT
  Age: 47 Year
  Sex: Male

DRUGS (2)
  1. KINERET [Suspect]
     Active Substance: ANAKINRA
     Indication: Ankylosing spondylitis
     Dosage: 100 MG, BID
     Route: 058
     Dates: start: 20190418
  2. KINERET [Suspect]
     Active Substance: ANAKINRA
     Dosage: 200 MG QD
     Route: 058

REACTIONS (7)
  - Off label use [Not Recovered/Not Resolved]
  - Hypersensitivity [Unknown]
  - Product dose omission issue [Unknown]
  - Product use issue [Unknown]
  - Urticaria [Unknown]
  - Gait disturbance [Unknown]
  - Peripheral swelling [Recovering/Resolving]

NARRATIVE: CASE EVENT DATE: 20190418
